FAERS Safety Report 20263948 (Version 1)
Quarter: 2021Q4

REPORT INFORMATION
  Report Type: Spontaneous
  Country: US (occurrence: None)
  Receive Date: 20211230
  Receipt Date: 20211230
  Transmission Date: 20220304
  Serious: No
  Sender: FDA-Public Use
  Company Number: None

PATIENT
  Age: 76 Year
  Sex: Female

DRUGS (1)
  1. MESALAMINE [Suspect]
     Active Substance: MESALAMINE
     Indication: Crohn^s disease

REACTIONS (6)
  - Overgrowth bacterial [None]
  - Abdominal pain [None]
  - Abdominal pain [None]
  - Gastritis bacterial [None]
  - Nausea [None]
  - Product counterfeit [None]

NARRATIVE: CASE EVENT DATE: 20210507
